FAERS Safety Report 5028029-3 (Version None)
Quarter: 2006Q2

REPORT INFORMATION
  Report Type: 
  Country: None (occurrence: None)
  Receive Date: 20060609
  Receipt Date: 20060601
  Transmission Date: 20061013
  Serious: Yes (Other)
  Sender: FDA-Public Use
  Company Number: 2006071239

PATIENT
  Sex: Male
  Weight: 89.3586 kg

DRUGS (2)
  1. DILANTIN KAPSEAL [Suspect]
     Indication: FRONTAL LOBE EPILEPSY
     Dosage: 300MG OR 400MG (100 MG, 1 IN 1D), ORAL
     Route: 048
     Dates: start: 19910101
  2. DIAZEPAM [Concomitant]

REACTIONS (3)
  - CONVULSION [None]
  - IRRITABILITY [None]
  - SOMNOLENCE [None]
